FAERS Safety Report 6015138-5 (Version None)
Quarter: 2008Q4

REPORT INFORMATION
  Report Type: 
  Country: None (occurrence: None)
  Receive Date: 20081219
  Receipt Date: 20081219
  Transmission Date: 20090506
  Serious: Yes (Life-Threatening, Hospitalization)
  Sender: FDA-Public Use
  Company Number: None

PATIENT
  Age: 44 Year
  Sex: Male
  Weight: 112.9457 kg

DRUGS (3)
  1. GEODON [Suspect]
     Indication: BIPOLAR DISORDER
     Dosage: 20MG BID PO X 3 DOSES
     Route: 048
     Dates: start: 20081121, end: 20081123
  2. GEODON [Suspect]
     Indication: SCHIZOPHRENIA
     Dosage: 20MG BID PO X 3 DOSES
     Route: 048
     Dates: start: 20081121, end: 20081123
  3. GEODON [Suspect]
     Indication: ANXIETY
     Dosage: 20MG Q4H PRN IM X 3 DOSES
     Route: 030
     Dates: start: 20081121, end: 20081123

REACTIONS (8)
  - BLOOD CREATINE PHOSPHOKINASE INCREASED [None]
  - CONFUSIONAL STATE [None]
  - ENCEPHALOPATHY [None]
  - HEART RATE INCREASED [None]
  - HYPERHIDROSIS [None]
  - HYPERTENSION [None]
  - PYREXIA [None]
  - RESTLESSNESS [None]
